FAERS Safety Report 5291291-6 (Version None)
Quarter: 2007Q2

REPORT INFORMATION
  Report Type: 
  Country: None (occurrence: None)
  Receive Date: 20070409
  Receipt Date: 20070328
  Transmission Date: 20071010
  Serious: Yes (Death, Life-Threatening, Other)
  Sender: FDA-Public Use
  Company Number: JP-PFIZER INC-2007025651

PATIENT
  Sex: Male

DRUGS (8)
  1. GABAPEN [Suspect]
     Route: 048
  2. CLOBAZAM [Suspect]
     Route: 048
  3. HYDANTOL [Suspect]
     Dosage: DAILY DOSE:350MG
     Route: 048
  4. EXCEGRAN [Suspect]
     Route: 048
  5. DEPAKENE [Suspect]
     Route: 048
  6. PHENOBARBITAL TAB [Suspect]
     Dosage: DAILY DOSE:75MG
     Route: 048
  7. INTAL [Concomitant]
     Route: 055
  8. ALLEGRA [Concomitant]
     Route: 048

REACTIONS (1)
  - ARRHYTHMIA [None]
